FAERS Safety Report 14649491 (Version 3)
Quarter: 2018Q2

REPORT INFORMATION
  Report Type: Report from Study
  Country: None (occurrence: FR)
  Receive Date: 20180316
  Receipt Date: 20180425
  Transmission Date: 20180711
  Serious: Yes (Death, Hospitalization)
  Sender: FDA-Public Use
  Company Number: FR-ABBVIE-18K-056-2288635-00

PATIENT
  Age: 68 Year
  Sex: Female

DRUGS (1)
  1. DUODOPA [Suspect]
     Active Substance: CARBIDOPA\LEVODOPA
     Indication: PARKINSON^S DISEASE
     Route: 050
     Dates: start: 201606

REACTIONS (4)
  - Parkinson^s disease [Unknown]
  - Respiratory disorder [Unknown]
  - Death [Fatal]
  - Fungal infection [Recovering/Resolving]

NARRATIVE: CASE EVENT DATE: 20180420
